FAERS Safety Report 7128668-X (Version None)
Quarter: 2010Q4

REPORT INFORMATION
  Report Type: 
  Country: None (occurrence: None)
  Receive Date: 20101130
  Receipt Date: 20101117
  Transmission Date: 20110411
  Serious: Yes (Other)
  Sender: FDA-Public Use
  Company Number: GB-TEVA-256647ISR

PATIENT
  Age: 66 Year
  Sex: Female
  Weight: 66.5 kg

DRUGS (1)
  1. SOTALOL [Suspect]
     Indication: ATRIAL FIBRILLATION
     Route: 048
     Dates: start: 20100726, end: 20100920

REACTIONS (1)
  - WEIGHT DECREASED [None]
